FAERS Safety Report 7298078-3 (Version None)
Quarter: 2011Q1

REPORT INFORMATION
  Report Type: 
  Country: None (occurrence: None)
  Receive Date: 20110217
  Receipt Date: 20110208
  Transmission Date: 20110831
  Serious: Yes (Hospitalization)
  Sender: FDA-Public Use
  Company Number: PHHY2010ZA54578

PATIENT
  Sex: Female

DRUGS (14)
  1. TRAMADOL HYDROCHLORIDE/ACETAMINOPHEN [Concomitant]
     Indication: OSTEOARTHRITIS
  2. OCUVITE LUTEIN [Concomitant]
     Indication: MACULAR DEGENERATION
     Dosage: 1 DF, QD
  3. MAGNESIUM [Concomitant]
  4. FLUID/ELECTROLYTE REPLACEMENT THERAPY [Concomitant]
     Route: 042
  5. SINEMET [Concomitant]
     Indication: PARKINSON'S DISEASE
     Dosage: 1 DF, QID
  6. AZILECT [Concomitant]
     Indication: PARKINSONISM
  7. PANADO [Concomitant]
  8. ACLASTA [Suspect]
     Indication: OSTEOPOROSIS
     Dosage: UNK
     Dates: start: 20100219
  9. CIPRALEX [Concomitant]
     Indication: DEPRESSION
     Dosage: 10 MG, DAILY
  10. SINEMET CR [Concomitant]
     Indication: PARKINSON'S DISEASE
     Dosage: 1 DF, QD
  11. DURAGESIC-50 [Concomitant]
     Indication: OSTEOARTHRITIS
  12. RIVOTRIL [Concomitant]
     Indication: SELF INJURIOUS BEHAVIOUR
     Dosage: 0.25 MG, QD
  13. CALCIFEROL [Concomitant]
     Indication: OSTEOPOROSIS
     Dosage: 50000 IU MON/WED/FRI
  14. STALEVO 100 [Concomitant]
     Indication: PARKINSONISM

REACTIONS (13)
  - HALLUCINATION, VISUAL [None]
  - DELUSION [None]
  - HYPERHIDROSIS [None]
  - RHABDOMYOLYSIS [None]
  - PSYCHOTIC DISORDER [None]
  - RENAL FAILURE [None]
  - BLOOD CREATININE INCREASED [None]
  - HYPERTENSION [None]
  - PYREXIA [None]
  - BLOOD CREATINE PHOSPHOKINASE INCREASED [None]
  - DYSKINESIA [None]
  - TACHYCARDIA [None]
  - HYPERKALAEMIA [None]
